FAERS Safety Report 8047274 (Version 3)
Quarter: 2014Q1

REPORT INFORMATION
  Report Type: Report from Study
  Country: US (occurrence: US)
  Receive Date: 20110721
  Receipt Date: 20140212
  Transmission Date: 20141002
  Serious: Yes (Hospitalization)
  Sender: FDA-Public Use
  Company Number: US-ACTELION-A-NJ2011-51489

PATIENT
  Age: 77 Year
  Sex: Female

DRUGS (1)
  1. TRACLEER [Suspect]
     Indication: PULMONARY ARTERIAL HYPERTENSION
     Dosage: UNK
     Route: 048

REACTIONS (5)
  - Laceration [Unknown]
  - Colitis [Unknown]
  - Fall [Unknown]
  - Rectal prolapse repair [Unknown]
  - Rectal haemorrhage [Unknown]
